FAERS Safety Report 12266271 (Version 1)
Quarter: 2016Q2

REPORT INFORMATION
  Report Type: Spontaneous
  Country: US (occurrence: None)
  Receive Date: 20160413
  Receipt Date: 20160413
  Transmission Date: 20160815
  Serious: Yes (Disabling)
  Sender: FDA-Public Use
  Company Number: None

PATIENT
  Age: 40 Year
  Sex: Female
  Weight: 86.18 kg

DRUGS (1)
  1. MIRENA [Suspect]
     Active Substance: LEVONORGESTREL

REACTIONS (8)
  - Arthritis [None]
  - Anxiety [None]
  - Arthralgia [None]
  - Uterine leiomyoma [None]
  - Dizziness [None]
  - Alopecia [None]
  - Gait disturbance [None]
  - Haemorrhagic anaemia [None]
